FAERS Safety Report 11907273 (Version 10)
Quarter: 2016Q3

REPORT INFORMATION
  Report Type: Spontaneous
  Country: US (occurrence: US)
  Receive Date: 20160111
  Receipt Date: 20160729
  Transmission Date: 20161109
  Serious: Yes (Hospitalization)
  Sender: FDA-Public Use
  Company Number: US-ACTELION-A-NJ2016-129574

PATIENT
  Age: 64 Year
  Sex: Female

DRUGS (3)
  1. VELETRI [Suspect]
     Active Substance: EPOPROSTENOL
     Indication: PULMONARY ARTERIAL HYPERTENSION
     Dosage: 30 NG/KG, PER MIN
     Route: 042
     Dates: start: 20130724
  2. ADCIRCA [Concomitant]
     Active Substance: TADALAFIL
  3. TRACLEER [Suspect]
     Active Substance: BOSENTAN
     Indication: PULMONARY ARTERIAL HYPERTENSION
     Dosage: 125 MG, BID
     Route: 048
     Dates: start: 20111019

REACTIONS (13)
  - Pulmonary embolism [Unknown]
  - Pulmonary arterial hypertension [Unknown]
  - Fall [Unknown]
  - Swelling [Unknown]
  - Constipation [Unknown]
  - Dyspnoea [Unknown]
  - Fluid overload [Unknown]
  - Fluid retention [Unknown]
  - Pain [Unknown]
  - Transfusion [Unknown]
  - Abdominal distension [Unknown]
  - General physical health deterioration [Unknown]
  - Gait disturbance [Unknown]
